FAERS Safety Report 9410327 (Version 1)
Quarter: 2013Q3

REPORT INFORMATION
  Report Type: Spontaneous
  Country: US (occurrence: US)
  Receive Date: 20130719
  Receipt Date: 20130719
  Transmission Date: 20140515
  Serious: Yes (Hospitalization, Other)
  Sender: FDA-Public Use
  Company Number: US-BAYER-2013-085392

PATIENT
  Age: 18 Year
  Sex: Female
  Weight: 61.22 kg

DRUGS (4)
  1. YAZ [Suspect]
  2. LEVOPHED [Concomitant]
  3. VASOPRESSIN [Concomitant]
  4. DOBUTAMINE [Concomitant]

REACTIONS (5)
  - Pulmonary embolism [None]
  - Haemorrhage intracranial [None]
  - Cholecystitis chronic [None]
  - Thrombophlebitis superficial [None]
  - Deep vein thrombosis [None]
